FAERS Safety Report 5281353-1 (Version None)
Quarter: 2007Q1

REPORT INFORMATION
  Report Type: 
  Country: None (occurrence: None)
  Receive Date: 20070330
  Receipt Date: 20070327
  Transmission Date: 20070707
  Serious: Yes (Death, Hospitalization)
  Sender: FDA-Public Use
  Company Number: DE-JNJFOC-20070305970

PATIENT
  Age: 70 Year
  Sex: Male

DRUGS (5)
  1. LEVOFLOXACIN [Suspect]
     Indication: PROPHYLAXIS
     Route: 065
  2. METOCLOPRAMIDE [Concomitant]
     Indication: PROPHYLAXIS
     Route: 048
  3. PANTOZOL [Concomitant]
     Indication: PROPHYLAXIS
     Route: 048
  4. DOCETAXEL [Concomitant]
     Indication: NON-SMALL CELL LUNG CANCER
     Route: 042
  5. CARBOPLATIN [Concomitant]
     Indication: NON-SMALL CELL LUNG CANCER
     Route: 042

REACTIONS (2)
  - DYSPNOEA [None]
  - NON-SMALL CELL LUNG CANCER [None]
